FAERS Safety Report 15413461 (Version 2)
Quarter: 2018Q4

REPORT INFORMATION
  Report Type: Spontaneous
  Country: BR (occurrence: BR)
  Receive Date: 20180921
  Receipt Date: 20181005
  Transmission Date: 20190204
  Serious: Yes (Other)
  Sender: FDA-Public Use
  Company Number: BR-GLAXOSMITHKLINE-BR2018GSK168977

PATIENT
  Age: 14 Year
  Sex: Female
  Weight: 67 kg

DRUGS (1)
  1. SERETIDE [Suspect]
     Active Substance: FLUTICASONE PROPIONATE\SALMETEROL XINAFOATE
     Indication: ASTHMA
     Dosage: 1 PUFF(S), BID

REACTIONS (4)
  - Product complaint [Unknown]
  - Asthmatic crisis [Unknown]
  - Stomatitis [Unknown]
  - Mouth swelling [Unknown]

NARRATIVE: CASE EVENT DATE: 20180913
